FAERS Safety Report 5768025-1 (Version None)
Quarter: 2008Q2

REPORT INFORMATION
  Report Type: 
  Country: None (occurrence: None)
  Receive Date: 20080612
  Receipt Date: 20080403
  Transmission Date: 20081010
  Serious: No
  Sender: FDA-Public Use
  Company Number: US-ASTRAZENECA-2008UW06783

PATIENT
  Age: 77 Year
  Sex: Female
  Weight: 83.9 kg

DRUGS (7)
  1. FASLODEX [Suspect]
     Indication: BREAST CANCER METASTATIC
     Route: 030
     Dates: start: 20080226
  2. NORVASC [Concomitant]
  3. BENICAR [Concomitant]
  4. PROFANONE [Concomitant]
  5. WARFARIN SODIUM [Concomitant]
  6. M.V.I. [Concomitant]
  7. TOPROL-XL [Concomitant]

REACTIONS (1)
  - BLOOD PRESSURE DECREASED [None]
